FAERS Safety Report 7320465-5 (Version None)
Quarter: 2011Q1

REPORT INFORMATION
  Report Type: 
  Country: None (occurrence: None)
  Receive Date: 20110228
  Receipt Date: 20110218
  Transmission Date: 20110831
  Serious: Yes (Hospitalization)
  Sender: FDA-Public Use
  Company Number: B0701536A

PATIENT
  Age: 71 Year
  Sex: Male

DRUGS (2)
  1. ARIXTRA [Suspect]
     Indication: ATRIAL FIBRILLATION
     Dosage: 7.5MG PER DAY
     Route: 058
     Dates: start: 20110211, end: 20110217
  2. ANTIVITAMINS K [Suspect]
     Indication: ATRIAL FIBRILLATION
     Route: 048
     Dates: start: 20110201, end: 20110217

REACTIONS (3)
  - COMPARTMENT SYNDROME [None]
  - ANAEMIA [None]
  - OFF LABEL USE [None]
